FAERS Safety Report 6877309-5 (Version None)
Quarter: 2010Q3

REPORT INFORMATION
  Report Type: 
  Country: None (occurrence: None)
  Receive Date: 20100727
  Receipt Date: 20090828
  Transmission Date: 20110219
  Serious: No
  Sender: FDA-Public Use
  Company Number: US-ABBOTT-09P-163-0594970-00

PATIENT
  Sex: Female
  Weight: 54.026 kg

DRUGS (4)
  1. SYNTHROID [Suspect]
     Indication: HYPOTHYROIDISM
     Dosage: VARYING DOSES
     Dates: start: 19740101, end: 20090801
  2. SYNTHROID [Suspect]
     Dates: start: 20090828
  3. EYE DROPS [Concomitant]
     Indication: GLAUCOMA
  4. CALCIUM [Concomitant]
     Indication: OSTEOPENIA

REACTIONS (3)
  - ANAEMIA [None]
  - FEELING ABNORMAL [None]
  - LABORATORY TEST ABNORMAL [None]
